FAERS Safety Report 17348871 (Version 1)
Quarter: 2020Q1

REPORT INFORMATION
  Report Type: Report from Study
  Country: US (occurrence: US)
  Receive Date: 20200129
  Receipt Date: 20200129
  Transmission Date: 20200409
  Serious: No
  Sender: FDA-Public Use
  Company Number: US-EXELIXIS-CABO-19024724

PATIENT
  Sex: Male

DRUGS (2)
  1. CABOMETYX [Suspect]
     Active Substance: CABOZANTINIB S-MALATE
     Dosage: 40 MG (1 TABLET ONCE EVERY DAY FOR 14 DAYS, FOLLOWD BY 7 DAYS OFF)
     Route: 048
  2. CABOMETYX [Suspect]
     Active Substance: CABOZANTINIB S-MALATE
     Indication: RENAL CANCER
     Dosage: 40 MG (1 TABLET ONCE EVERY DAY FOR 14 DAYS, FOLLOWD BY 7 DAYS OFF)
     Route: 048

REACTIONS (2)
  - Dental caries [Not Recovered/Not Resolved]
  - Product dose omission [Unknown]
